FAERS Safety Report 8385039-6 (Version None)
Quarter: 2012Q2

REPORT INFORMATION
  Report Type: 
  Country: None (occurrence: None)
  Receive Date: 20120524
  Receipt Date: 20120518
  Transmission Date: 20120825
  Serious: Yes (Disabling)
  Sender: FDA-Public Use
  Company Number: US-MERCK-1203USA03991

PATIENT
  Age: 32 Month
  Sex: Male

DRUGS (1)
  1. COSOPT [Suspect]
     Indication: GLAUCOMA
     Dosage: 1 DROP TWICE DAILY
     Route: 047
     Dates: start: 20091001

REACTIONS (3)
  - FEAR [None]
  - SCREAMING [None]
  - INAPPROPRIATE SCHEDULE OF DRUG ADMINISTRATION [None]
